FAERS Safety Report 8900434 (Version 1)
Quarter: 2012Q4

REPORT INFORMATION
  Report Type: 
  Country: AR (occurrence: AR)
  Receive Date: 20121109
  Receipt Date: 20121109
  Transmission Date: 20130627
  Serious: Yes (Death, Other)
  Sender: FDA-Public Use
  Company Number: PHHY2012AR102955

PATIENT
  Age: 81 Year
  Sex: Female

DRUGS (1)
  1. STALEVO [Suspect]
     Indication: PARKINSON^S DISEASE
     Dosage: 2 or 3 daily
     Dates: start: 20111125

REACTIONS (6)
  - Death [Fatal]
  - Renal failure [Unknown]
  - Breast discolouration [Unknown]
  - Skin discolouration [Unknown]
  - Urinary tract infection [Unknown]
  - White blood cell count increased [Unknown]
